FAERS Safety Report 20408012 (Version 5)
Quarter: 2022Q1

REPORT INFORMATION
  Report Type: Report from Study
  Country: US (occurrence: US)
  Receive Date: 20220201
  Receipt Date: 20220316
  Transmission Date: 20220423
  Serious: Yes (Life-Threatening, Hospitalization, Other)
  Sender: FDA-Public Use
  Company Number: US-BRISTOL-MYERS SQUIBB COMPANY-BMS-2022-011837

PATIENT
  Age: 10 Year
  Sex: Male
  Weight: 28.8 kg

DRUGS (3)
  1. NIVOLUMAB [Suspect]
     Active Substance: NIVOLUMAB
     Indication: Brain stem glioma
     Dosage: 127 MILLIGRAM, Q3WK
     Route: 042
     Dates: start: 20210921, end: 20220104
  2. INVESTIGATIONAL PRODUCT [Suspect]
     Active Substance: INVESTIGATIONAL PRODUCT
     Indication: Brain stem glioma
     Dosage: 0.8 ML SIC, EVERY 3 WEEKS
     Route: 058
     Dates: start: 20210921, end: 20220104
  3. HILTONOL [Suspect]
     Active Substance: HILTONOL
     Indication: Brain stem glioma
     Dosage: 0.85 MILLIGRAM, Q3WK
     Route: 030
     Dates: start: 20210921, end: 20220104

REACTIONS (2)
  - COVID-19 [Recovered/Resolved]
  - Tumour pseudoprogression [Unknown]

NARRATIVE: CASE EVENT DATE: 20220121
